FAERS Safety Report 19175137 (Version 1)
Quarter: 2021Q2

REPORT INFORMATION
  Report Type: Report from Study
  Country: US (occurrence: US)
  Receive Date: 20210423
  Receipt Date: 20210423
  Transmission Date: 20210717
  Serious: Yes (Other)
  Sender: FDA-Public Use
  Company Number: NVSC2021US083177

PATIENT
  Sex: Male

DRUGS (1)
  1. ENTRESTO [Suspect]
     Active Substance: SACUBITRIL\VALSARTAN
     Indication: PRODUCT USED FOR UNKNOWN INDICATION
     Dosage: UNK UNK, UNKNOWN
     Route: 065

REACTIONS (10)
  - Cardiac disorder [Unknown]
  - Cardiac failure [Unknown]
  - Echocardiogram abnormal [Unknown]
  - Myocardial infarction [Unknown]
  - Coronary artery disease [Unknown]
  - Cardiomegaly [Unknown]
  - Dyspnoea [Unknown]
  - Arterial spasm [Unknown]
  - Swelling [Unknown]
  - Hypertension [Unknown]
